FAERS Safety Report 5323447-8 (Version None)
Quarter: 2007Q2

REPORT INFORMATION
  Report Type: 
  Country: None (occurrence: None)
  Receive Date: 20070514
  Receipt Date: 20070507
  Transmission Date: 20071010
  Serious: Yes (Other)
  Sender: FDA-Public Use
  Company Number: PHMT2007CA01034

PATIENT
  Age: 68 Year
  Sex: Female

DRUGS (2)
  1. LOSEC                                   /CAN/ [Concomitant]
  2. SANDOSTATIN LAR [Suspect]
     Indication: NEUROENDOCRINE CARCINOMA
     Dosage: 10 MG EVERY 4 WEEKS
     Route: 030
     Dates: start: 20060911, end: 20070507

REACTIONS (9)
  - ABDOMINAL DISCOMFORT [None]
  - ABDOMINAL PAIN [None]
  - ASTHENIA [None]
  - BONE PAIN [None]
  - CHEST DISCOMFORT [None]
  - FATIGUE [None]
  - LIP SWELLING [None]
  - METASTASES TO LIVER [None]
  - URTICARIA [None]
